FAERS Safety Report 12398626 (Version 1)
Quarter: 2016Q2

REPORT INFORMATION
  Report Type: Spontaneous
  Country: US (occurrence: US)
  Receive Date: 20160524
  Receipt Date: 20160524
  Transmission Date: 20160815
  Serious: No
  Sender: FDA-Public Use
  Company Number: US-SANOFI-AVENTIS-2013SA078503

PATIENT
  Sex: Female

DRUGS (3)
  1. LANTUS [Suspect]
     Active Substance: INSULIN GLARGINE
     Indication: TYPE 1 DIABETES MELLITUS
     Dosage: DOSE:16 UNIT(S)
     Route: 065
     Dates: start: 2012
  2. NOVOLIN N [Suspect]
     Active Substance: INSULIN HUMAN
     Route: 065
  3. NOVOLIN R [Suspect]
     Active Substance: INSULIN HUMAN
     Route: 065

REACTIONS (2)
  - Hypoacusis [Unknown]
  - Blood glucose decreased [Unknown]
